FAERS Safety Report 5752550-3 (Version None)
Quarter: 2008Q2

REPORT INFORMATION
  Report Type: 
  Country: None (occurrence: None)
  Receive Date: 20080529
  Receipt Date: 20080522
  Transmission Date: 20081010
  Serious: Yes (Other)
  Sender: FDA-Public Use
  Company Number: PHNU2008DE01891

PATIENT
  Sex: Female

DRUGS (4)
  1. RASILEZ [Suspect]
     Dosage: UNK
  2. EXFORGE [Concomitant]
  3. NEBILET [Concomitant]
  4. FLUVASTATIN [Concomitant]

REACTIONS (1)
  - TACHYARRHYTHMIA [None]
